FAERS Safety Report 20374186 (Version 4)
Quarter: 2022Q3

REPORT INFORMATION
  Report Type: Spontaneous
  Country: US (occurrence: US)
  Receive Date: 20220125
  Receipt Date: 20220830
  Transmission Date: 20221027
  Serious: Yes (Hospitalization, Other)
  Sender: FDA-Public Use
  Company Number: US-PFIZER INC-202101773244

PATIENT
  Age: 70 Year
  Sex: Female

DRUGS (5)
  1. XELJANZ XR [Suspect]
     Active Substance: TOFACITINIB CITRATE
     Indication: Rheumatoid arthritis
     Dosage: 11 MG, 1X/DAY
     Route: 048
     Dates: start: 2014
  2. XELJANZ XR [Suspect]
     Active Substance: TOFACITINIB CITRATE
     Dosage: 11 MG, DAILY
     Route: 048
  3. METHOTREXATE SODIUM [Concomitant]
     Active Substance: METHOTREXATE SODIUM
     Dosage: UNK
     Route: 048
     Dates: start: 2021
  4. CELEBREX [Concomitant]
     Active Substance: CELECOXIB
     Dosage: UNK
  5. PREDNISONE [Concomitant]
     Active Substance: PREDNISONE
     Dosage: UNK
     Route: 048

REACTIONS (12)
  - Pneumonia [Unknown]
  - COVID-19 [Unknown]
  - Drug ineffective [Unknown]
  - Product dose omission in error [Unknown]
  - Product dose omission issue [Unknown]
  - Condition aggravated [Unknown]
  - Joint swelling [Recovering/Resolving]
  - Peripheral swelling [Recovered/Resolved]
  - Influenza [Unknown]
  - Herpes zoster [Unknown]
  - Pain [Unknown]
  - Finger deformity [Unknown]

NARRATIVE: CASE EVENT DATE: 20140101
